FAERS Safety Report 8243551-4 (Version None)
Quarter: 2012Q1

REPORT INFORMATION
  Report Type: 
  Country: None (occurrence: None)
  Receive Date: 20120315
  Receipt Date: 20100224
  Transmission Date: 20120608
  Serious: Yes (Other)
  Sender: FDA-Public Use
  Company Number: PHEH2010US02756

PATIENT
  Age: 25 Year
  Sex: Male
  Weight: 59 kg

DRUGS (2)
  1. ESTAZOLAM [Concomitant]
  2. FANAPT [Suspect]
     Indication: SCHIZOPHRENIA
     Dosage: ORAL : 6 MG, BID, ORAL
     Route: 048
     Dates: start: 20100201, end: 20100212

REACTIONS (1)
  - TACHYCARDIA [None]
